FAERS Safety Report 10758364 (Version 2)
Quarter: 2015Q1

REPORT INFORMATION
  Report Type: Spontaneous
  Country: JP (occurrence: JP)
  Receive Date: 20150203
  Receipt Date: 20150306
  Transmission Date: 20150721
  Serious: Yes (Hospitalization)
  Sender: FDA-Public Use
  Company Number: JP-B.I. PHARMACEUTICALS,INC./RIDGEFIELD-2015-BI-05044GD

PATIENT
  Age: 76 Year
  Sex: Male

DRUGS (8)
  1. PRAMIPEXOLE [Suspect]
     Active Substance: PRAMIPEXOLE
     Dosage: 1 MG
     Route: 065
     Dates: start: 200807, end: 200807
  2. LEVODOPA [Suspect]
     Active Substance: LEVODOPA
     Indication: PARKINSON^S DISEASE
     Dosage: 200 MG
     Route: 048
     Dates: start: 200512
  3. ARTANE [Suspect]
     Active Substance: TRIHEXYPHENIDYL HYDROCHLORIDE
     Indication: PARKINSON^S DISEASE
     Dosage: 4 MG
     Route: 048
     Dates: start: 200805, end: 200812
  4. AMANTADINE [Suspect]
     Active Substance: AMANTADINE
     Indication: PARKINSON^S DISEASE
     Dosage: 250 MG
     Route: 048
     Dates: start: 200805, end: 200806
  5. AMANTADINE [Suspect]
     Active Substance: AMANTADINE
     Dosage: 300 MG
     Route: 065
     Dates: start: 200806, end: 200812
  6. PRAMIPEXOLE [Suspect]
     Active Substance: PRAMIPEXOLE
     Indication: PARKINSON^S DISEASE
     Dosage: 0.5 MG
     Route: 048
     Dates: start: 200806, end: 200807
  7. CABERGOLINE. [Suspect]
     Active Substance: CABERGOLINE
     Indication: PARKINSON^S DISEASE
     Dosage: 2 MG
     Route: 048
     Dates: start: 200805, end: 200812
  8. PRAMIPEXOLE [Suspect]
     Active Substance: PRAMIPEXOLE
     Dosage: 1.5 MG
     Route: 065
     Dates: start: 200808, end: 200902

REACTIONS (1)
  - Hallucination, tactile [Recovered/Resolved]

NARRATIVE: CASE EVENT DATE: 200810
